FAERS Safety Report 15225973 (Version 1)
Quarter: 2018Q3

REPORT INFORMATION
  Report Type: Spontaneous
  Country: US (occurrence: US)
  Receive Date: 20180801
  Receipt Date: 20180801
  Transmission Date: 20181010
  Serious: Yes (Hospitalization, Other)
  Sender: FDA-Public Use
  Company Number: US-ZYDUS-020989

PATIENT
  Age: 76 Year
  Sex: Female

DRUGS (2)
  1. METHOTREXATE. [Suspect]
     Active Substance: METHOTREXATE
     Indication: RHEUMATOID ARTHRITIS
     Route: 065
  2. ABATACEPT [Suspect]
     Active Substance: ABATACEPT
     Indication: RHEUMATOID ARTHRITIS
     Route: 065

REACTIONS (7)
  - Sinus node dysfunction [Unknown]
  - Squamous cell carcinoma of lung [Unknown]
  - Pulmonary necrosis [Unknown]
  - Pulmonary mass [Unknown]
  - Pulmonary nocardiosis [Unknown]
  - Dyspnoea [Unknown]
  - Productive cough [Unknown]
